FAERS Safety Report 11712547 (Version 1)
Quarter: 2015Q4

REPORT INFORMATION
  Report Type: Spontaneous
  Country: US (occurrence: US)
  Receive Date: 20151104
  Receipt Date: 20151104
  Transmission Date: 20160304
  Serious: No
  Sender: FDA-Public Use
  Company Number: US-ELI_LILLY_AND_COMPANY-US201106002005

PATIENT
  Age: 67 Year
  Sex: Female

DRUGS (3)
  1. FORTEO [Suspect]
     Active Substance: TERIPARATIDE
     Indication: OSTEOPOROSIS
     Dosage: 20 UG, QD
     Dates: start: 20110513, end: 20110609
  2. FORTEO [Suspect]
     Active Substance: TERIPARATIDE
     Dosage: 20 UG, QD
  3. FORTEO [Suspect]
     Active Substance: TERIPARATIDE
     Dosage: 20 UG, QD
     Route: 065
     Dates: start: 20110610

REACTIONS (16)
  - Limb discomfort [Unknown]
  - Injection site erythema [Unknown]
  - Palpitations [Unknown]
  - Feeling abnormal [Unknown]
  - Injection site mass [Unknown]
  - Nausea [Unknown]
  - Injection site pain [Not Recovered/Not Resolved]
  - Adverse event [Unknown]
  - Injection site bruising [Unknown]
  - Extrasystoles [Unknown]
  - Pain in extremity [Unknown]
  - Muscle spasms [Unknown]
  - Injection site swelling [Not Recovered/Not Resolved]
  - Headache [Unknown]
  - Middle insomnia [Unknown]
  - Dizziness [Unknown]

NARRATIVE: CASE EVENT DATE: 20110513
